FAERS Safety Report 24462585 (Version 1)
Quarter: 2024Q4

REPORT INFORMATION
  Report Type: Spontaneous
  Country: PL (occurrence: PL)
  Receive Date: 20241018
  Receipt Date: 20241018
  Transmission Date: 20250115
  Serious: Yes (Death, Other)
  Sender: RANBAXY
  Company Number: PL-SUN PHARMACEUTICAL INDUSTRIES LTD-2024RR-473806

PATIENT
  Age: 72 Year
  Sex: Male

DRUGS (8)
  1. ERLOTINIB [Suspect]
     Active Substance: ERLOTINIB
     Indication: Lung neoplasm malignant
     Dosage: UNK
     Route: 065
  2. DOXORUBICIN [Suspect]
     Active Substance: DOXORUBICIN
     Indication: Lymphocytic leukaemia
     Dosage: UNK
     Route: 065
     Dates: end: 202209
  3. VINCRISTINE [Suspect]
     Active Substance: VINCRISTINE
     Indication: Lymphocytic leukaemia
     Dosage: UNK
     Route: 065
     Dates: end: 202209
  4. PREDNISONE [Suspect]
     Active Substance: PREDNISONE
     Indication: Lymphocytic leukaemia
     Dosage: UNK
     Route: 065
     Dates: end: 202209
  5. RITUXIMAB [Suspect]
     Active Substance: RITUXIMAB
     Indication: Lymphocytic leukaemia
     Dosage: UNK
     Route: 065
     Dates: end: 202209
  6. BENDAMUSTINE [Suspect]
     Active Substance: BENDAMUSTINE
     Indication: Lymphocytic leukaemia
     Dosage: UNK
     Route: 065
     Dates: end: 202209
  7. VENETOCLAX [Suspect]
     Active Substance: VENETOCLAX
     Indication: Lymphocytic leukaemia
     Dosage: UNK
     Route: 065
     Dates: end: 202209
  8. CYCLOPHOSPHAMIDE [Suspect]
     Active Substance: CYCLOPHOSPHAMIDE
     Indication: Lymphocytic leukaemia
     Dosage: UNK
     Route: 065
     Dates: end: 202209

REACTIONS (5)
  - Disease progression [Unknown]
  - Dermatitis acneiform [Unknown]
  - Infection [Fatal]
  - Leukocytosis [Unknown]
  - Anaemia [Unknown]
